FAERS Safety Report 6419225-9 (Version None)
Quarter: 2009Q4

REPORT INFORMATION
  Report Type: 
  Country: None (occurrence: None)
  Receive Date: 20091029
  Receipt Date: 20091013
  Transmission Date: 20100525
  Serious: Yes (Death, Other)
  Sender: FDA-Public Use
  Company Number: US-ASTRAZENECA-2007UW09509

PATIENT
  Age: 20027 Day
  Sex: Male

DRUGS (6)
  1. SEROQUEL [Suspect]
     Indication: DEPRESSION
     Dosage: 100- 450 MG
     Route: 048
     Dates: start: 20020101, end: 20030326
  2. ZYPREXA [Concomitant]
     Indication: DEPRESSION
     Dates: start: 20020610, end: 20020715
  3. ZYPREXA [Concomitant]
     Indication: DEMENTIA ALZHEIMER'S TYPE
     Dates: start: 20020610, end: 20020715
  4. NAVANE [Concomitant]
  5. PAXIL [Concomitant]
  6. ARICEPT [Concomitant]

REACTIONS (3)
  - DEATH [None]
  - PANCREATITIS ACUTE [None]
  - TYPE 2 DIABETES MELLITUS [None]
